FAERS Safety Report 23566601 (Version 1)
Quarter: 2024Q1

REPORT INFORMATION
  Report Type: Spontaneous
  Country: JP (occurrence: JP)
  Receive Date: 20240226
  Receipt Date: 20240226
  Transmission Date: 20240410
  Serious: Yes (Hospitalization, Other)
  Sender: FDA-Public Use
  Company Number: JP-002147023-NVSJ2023JP014271

PATIENT
  Sex: Male

DRUGS (3)
  1. NEORAL [Suspect]
     Active Substance: CYCLOSPORINE
     Indication: Heart transplant
     Dosage: UNK
     Route: 065
  2. NEORAL [Suspect]
     Active Substance: CYCLOSPORINE
     Indication: Prophylaxis against transplant rejection
  3. IMURAN [Suspect]
     Active Substance: AZATHIOPRINE
     Indication: Immunosuppression
     Dosage: 50 MG
     Route: 065

REACTIONS (6)
  - Renal impairment [Not Recovered/Not Resolved]
  - Renal tubular disorder [Unknown]
  - Proteinuria [Unknown]
  - Hypertension [Recovering/Resolving]
  - Left ventricular dysfunction [Unknown]
  - Coronary artery disease [Unknown]
